FAERS Safety Report 14616189 (Version 1)
Quarter: 2018Q1

REPORT INFORMATION
  Report Type: Spontaneous
  Country: FR (occurrence: FR)
  Receive Date: 20180309
  Receipt Date: 20180309
  Transmission Date: 20180509
  Serious: Yes (Other)
  Sender: FDA-Public Use
  Company Number: FR-MERCK KGAA-2043404

PATIENT
  Age: 22 Year
  Sex: Male
  Weight: 100 kg

DRUGS (1)
  1. NOVOTHYROX [Suspect]
     Active Substance: LEVOTHYROXINE SODIUM
     Indication: HYPOTHYROIDISM
     Route: 048
     Dates: start: 20170715

REACTIONS (4)
  - Disturbance in attention [Recovering/Resolving]
  - Asthenia [Recovering/Resolving]
  - Suicidal ideation [Recovering/Resolving]
  - Depersonalisation/derealisation disorder [Recovering/Resolving]

NARRATIVE: CASE EVENT DATE: 20170910
